FAERS Safety Report 16841505 (Version 1)
Quarter: 2019Q3

REPORT INFORMATION
  Report Type: Spontaneous
  Country: US (occurrence: US)
  Receive Date: 20190923
  Receipt Date: 20190923
  Transmission Date: 20191005
  Serious: No
  Sender: FDA-Public Use
  Company Number: US-JNJFOC-20190922529

PATIENT
  Sex: Male

DRUGS (1)
  1. SPRAVATO [Suspect]
     Active Substance: ESKETAMINE
     Indication: PRODUCT USED FOR UNKNOWN INDICATION
     Dates: start: 20190916, end: 20190916

REACTIONS (5)
  - Hypoaesthesia [Unknown]
  - Feeling abnormal [Unknown]
  - Claustrophobia [Unknown]
  - Agitation [Unknown]
  - Back pain [Unknown]

NARRATIVE: CASE EVENT DATE: 20190916
